FAERS Safety Report 12627025 (Version 2)
Quarter: 2016Q3

REPORT INFORMATION
  Report Type: Report from Study
  Country: IT (occurrence: IT)
  Receive Date: 20160805
  Receipt Date: 20160819
  Transmission Date: 20161109
  Serious: Yes (Death, Hospitalization, Other)
  Sender: FDA-Public Use
  Company Number: IT-CELGENEUS-ITA-2014102366

PATIENT
  Age: 74 Year
  Sex: Female

DRUGS (1)
  1. ISTODAX [Suspect]
     Active Substance: ROMIDEPSIN
     Indication: MYCOSIS FUNGOIDES REFRACTORY
     Dosage: 25 MILLIGRAM
     Route: 041
     Dates: start: 20120927

REACTIONS (2)
  - Endocarditis bacterial [Fatal]
  - Invasive ductal breast carcinoma [Recovered/Resolved with Sequelae]

NARRATIVE: CASE EVENT DATE: 20140926
